FAERS Safety Report 20458930 (Version 2)
Quarter: 2022Q1

REPORT INFORMATION
  Report Type: Spontaneous
  Country: JP (occurrence: JP)
  Receive Date: 20220211
  Receipt Date: 20220216
  Transmission Date: 20220423
  Serious: Yes (Hospitalization, Other)
  Sender: FDA-Public Use
  Company Number: JP-Teva Takeda Yakuhin-2022-JP-000698J

PATIENT
  Age: 68 Year
  Sex: Female

DRUGS (3)
  1. ASPIRIN\LANSOPRAZOLE [Suspect]
     Active Substance: ASPIRIN\LANSOPRAZOLE
     Indication: Product used for unknown indication
     Dosage: AFTER BREAKFAST1 DOSAGE FORM = 100MG ASPIRIN + 15MG
     Route: 048
  2. LANSOPRAZOLE [Suspect]
     Active Substance: LANSOPRAZOLE
     Indication: Product used for unknown indication
     Dosage: 15 MILLIGRAM, QD, AFTER DINNER
     Route: 048
  3. BETAMETHASONE\DEXCHLORPHENIRAMINE MALEATE [Concomitant]
     Active Substance: BETAMETHASONE\DEXCHLORPHENIRAMINE MALEATE
     Dosage: UNK
     Route: 050

REACTIONS (2)
  - Cellulitis [Recovering/Resolving]
  - Product use issue [Unknown]
